FAERS Safety Report 5304834-0 (Version None)
Quarter: 2007Q2

REPORT INFORMATION
  Report Type: 
  Country: None (occurrence: None)
  Receive Date: 20070423
  Receipt Date: 20070419
  Transmission Date: 20071010
  Serious: Yes (Other)
  Sender: FDA-Public Use
  Company Number: DE-BOEHRINGER INGELHEIM GMBH, GERMANY-2007-DE-02170DE

PATIENT
  Sex: Male

DRUGS (3)
  1. ALNA OCAS [Suspect]
     Indication: BENIGN PROSTATIC HYPERPLASIA
     Dates: start: 20060320, end: 20070306
  2. CEFUROXIME [Concomitant]
     Indication: INFECTION
     Route: 048
     Dates: start: 20070123
  3. OFLOXAZIN RATIO [Concomitant]
     Indication: INFECTION
     Route: 048
     Dates: start: 20070129

REACTIONS (5)
  - DYSPNOEA [None]
  - LUNG DISORDER [None]
  - PARANASAL SINUS DISCOMFORT [None]
  - RHINITIS [None]
  - THROAT IRRITATION [None]
